FAERS Safety Report 5528789-9 (Version None)
Quarter: 2007Q4

REPORT INFORMATION
  Report Type: 
  Country: None (occurrence: None)
  Receive Date: 20071129
  Receipt Date: 20071116
  Transmission Date: 20080405
  Serious: Yes (Hospitalization)
  Sender: FDA-Public Use
  Company Number: US-BRACCO-BDI-010490

PATIENT
  Sex: Female

DRUGS (2)
  1. MULTIHANCE [Suspect]
     Indication: INTRACRANIAL HYPOTENSION
     Route: 037
     Dates: start: 20071101, end: 20071101
  2. MULTIHANCE [Suspect]
     Indication: EPIDURAL BLOOD PATCH
     Route: 037
     Dates: start: 20071101, end: 20071101

REACTIONS (3)
  - CONVULSION [None]
  - DRUG ADMINISTRATION ERROR [None]
  - LOSS OF CONSCIOUSNESS [None]
